FAERS Safety Report 9497353 (Version 1)
Quarter: 2013Q3

REPORT INFORMATION
  Report Type: Spontaneous
  Country: US (occurrence: US)
  Receive Date: 20130904
  Receipt Date: 20130904
  Transmission Date: 20140515
  Serious: No
  Sender: FDA-Public Use
  Company Number: US-AMGEN-USASP2013058352

PATIENT
  Age: 60 Year
  Sex: Female
  Weight: 70.3 kg

DRUGS (5)
  1. ENBREL [Suspect]
     Indication: PRODUCT USED FOR UNKNOWN INDICATION
     Dosage: 50 MG, QWK
     Route: 058
  2. DAYPRO [Concomitant]
     Dosage: 600 MG, UNK
  3. METHOTREXATE [Concomitant]
     Dosage: 2.5 MG, UNK
  4. PREDNISONE [Concomitant]
     Dosage: 1 MG, UNK
  5. FOLIC ACID [Concomitant]
     Dosage: UNK

REACTIONS (3)
  - Fall [Unknown]
  - Arthropod sting [Recovering/Resolving]
  - Local swelling [Recovering/Resolving]
